FAERS Safety Report 18214802 (Version 1)
Quarter: 2020Q3

REPORT INFORMATION
  Report Type: Spontaneous
  Country: FR (occurrence: FR)
  Receive Date: 20200831
  Receipt Date: 20200831
  Transmission Date: 20201103
  Serious: Yes (Other)
  Sender: FDA-Public Use
  Company Number: FR-MYLANLABS-2020M1074377

PATIENT
  Age: 87 Year
  Sex: Female
  Weight: 65 kg

DRUGS (2)
  1. LETROZOLE MYLAN 2,5 MG, COMPRIM? PELLICUL? [Suspect]
     Active Substance: LETROZOLE
     Dosage: 2.5 MILLIGRAM, QD
     Route: 048
     Dates: start: 20200326, end: 20200330
  2. LETROZOLE MYLAN 2,5 MG, COMPRIM? PELLICUL? [Suspect]
     Active Substance: LETROZOLE
     Indication: BREAST CANCER
     Dosage: 2.5 MILLIGRAM, QD
     Route: 048
     Dates: start: 20200305, end: 20200316

REACTIONS (2)
  - Toxic skin eruption [Recovering/Resolving]
  - Oedema peripheral [Recovering/Resolving]

NARRATIVE: CASE EVENT DATE: 20200316
